FAERS Safety Report 8097923 (Version 2)
Quarter: 2013Q1

REPORT INFORMATION
  Report Type: Report from Study
  Country: FR (occurrence: FR)
  Receive Date: 20110819
  Receipt Date: 20130311
  Transmission Date: 20140127
  Serious: Yes (Hospitalization)
  Sender: FDA-Public Use
  Company Number: FR-ROCHE-784459

PATIENT
  Age: 33 None
  Sex: Female
  Weight: 46 kg

DRUGS (25)
  1. TOCILIZUMAB [Suspect]
     Indication: RHEUMATOID ARTHRITIS
     Route: 041
     Dates: start: 20110124, end: 20111121
  2. TOCILIZUMAB [Suspect]
     Route: 041
  3. TOCILIZUMAB [Suspect]
     Route: 041
  4. TOCILIZUMAB [Suspect]
     Route: 041
  5. TOCILIZUMAB [Suspect]
     Route: 041
  6. TOCILIZUMAB [Suspect]
     Route: 041
  7. TOCILIZUMAB [Suspect]
     Route: 041
  8. TOCILIZUMAB [Suspect]
     Route: 041
  9. TOCILIZUMAB [Suspect]
     Route: 041
  10. TOCILIZUMAB [Suspect]
     Route: 041
  11. CORTANCYL [Suspect]
     Indication: RHEUMATOID ARTHRITIS
     Route: 065
  12. CORTANCYL [Suspect]
     Route: 065
  13. CORTANCYL [Suspect]
     Route: 065
  14. CORTANCYL [Suspect]
     Route: 065
  15. CORTANCYL [Suspect]
     Route: 065
  16. CORTANCYL [Suspect]
     Route: 065
  17. CORTANCYL [Suspect]
     Route: 065
  18. CORTANCYL [Suspect]
     Route: 065
  19. CORTANCYL [Suspect]
     Route: 065
  20. CORTANCYL [Suspect]
     Route: 065
  21. CORTANCYL [Suspect]
     Route: 065
  22. CORTANCYL [Suspect]
     Route: 065
  23. PARACETAMOL [Concomitant]
     Indication: RHEUMATOID ARTHRITIS
     Route: 065
  24. ORENCIA [Concomitant]
  25. IXPRIM [Concomitant]

REACTIONS (4)
  - Erythema infectiosum [Recovered/Resolved]
  - Aplasia pure red cell [Recovered/Resolved]
  - Anaemia [Recovered/Resolved]
  - Leukocytosis [Not Recovered/Not Resolved]
